FAERS Safety Report 13511468 (Version 1)
Quarter: 2017Q2

REPORT INFORMATION
  Report Type: Report from Study
  Country: JP (occurrence: JP)
  Receive Date: 20170504
  Receipt Date: 20170504
  Transmission Date: 20170830
  Serious: Yes (Death, Hospitalization)
  Sender: FDA-Public Use
  Company Number: JP-BAYER-2017-078698

PATIENT
  Age: 82 Year
  Sex: Male
  Weight: 64 kg

DRUGS (10)
  1. ABSORBABLE GELATIN SPONGE [Concomitant]
  2. CILOSTAZOL. [Concomitant]
     Active Substance: CILOSTAZOL
     Dosage: 100 MG, QD
  3. NEXAVAR [Suspect]
     Active Substance: SORAFENIB
     Indication: HEPATOCELLULAR CARCINOMA
     Dosage: DAILY DOSE 400 MG
     Route: 048
     Dates: start: 20160627, end: 20160827
  4. OLMETEC [Concomitant]
     Active Substance: OLMESARTAN MEDOXOMIL
     Dosage: 10 MG, QD
  5. EPIRUBICIN [Concomitant]
     Active Substance: EPIRUBICIN
     Dosage: DAILY DOSE 12 MG
  6. EPIRUBICIN [Concomitant]
     Active Substance: EPIRUBICIN
     Dosage: DAILY DOSE 22 MG
  7. AMLODIPINE [Concomitant]
     Active Substance: AMLODIPINE BESYLATE
     Dosage: 2.5 MG, QD
  8. AMARYL [Concomitant]
     Active Substance: GLIMEPIRIDE
     Dosage: 0.5 TABLET DAILY
  9. CISPLATIN. [Concomitant]
     Active Substance: CISPLATIN
     Dosage: DAILY DOSE 90 MG
  10. NEXIUM [Concomitant]
     Active Substance: ESOMEPRAZOLE MAGNESIUM
     Dosage: 20 MG, QD

REACTIONS (1)
  - Hepatic failure [Fatal]

NARRATIVE: CASE EVENT DATE: 20160828
